FAERS Safety Report 17529966 (Version 1)
Quarter: 2020Q1

REPORT INFORMATION
  Report Type: Spontaneous
  Country: CN (occurrence: CN)
  Receive Date: 20200312
  Receipt Date: 20200312
  Transmission Date: 20200409
  Serious: Yes (Hospitalization)
  Sender: FDA-Public Use
  Company Number: CN-PFIZER INC-2020104718

PATIENT
  Age: 38 Year
  Sex: Male

DRUGS (1)
  1. EFEXOR XR [Suspect]
     Active Substance: VENLAFAXINE HYDROCHLORIDE
     Indication: ANXIETY
     Dosage: UNK
     Route: 048
     Dates: start: 20130720

REACTIONS (5)
  - Drug ineffective [Unknown]
  - Delusion [Unknown]
  - Vertigo [Unknown]
  - Agitation [Unknown]
  - Burning sensation [Unknown]
